FAERS Safety Report 6373958-1 (Version None)
Quarter: 2009Q3

REPORT INFORMATION
  Report Type: 
  Country: None (occurrence: None)
  Receive Date: 20090924
  Receipt Date: 20090521
  Transmission Date: 20100115
  Serious: No
  Sender: FDA-Public Use
  Company Number: US-ASTRAZENECA-2009UW13127

PATIENT
  Sex: Female

DRUGS (1)
  1. SEROQUEL [Suspect]
     Dosage: 200 MG
     Route: 048
     Dates: start: 20060101

REACTIONS (7)
  - DIARRHOEA [None]
  - DYSKINESIA [None]
  - DYSPHEMIA [None]
  - HYPERTENSION [None]
  - SOMNOLENCE [None]
  - TINNITUS [None]
  - WEIGHT INCREASED [None]
